FAERS Safety Report 7595559-X (Version None)
Quarter: 2011Q3

REPORT INFORMATION
  Report Type: 
  Country: None (occurrence: None)
  Receive Date: 20110707
  Receipt Date: 20110615
  Transmission Date: 20111222
  Serious: Yes (Hospitalization, Congenital Anomaly)
  Sender: FDA-Public Use
  Company Number: US-GLAXOSMITHKLINE-A0921157A

PATIENT
  Sex: Male
  Weight: 2.9 kg

DRUGS (4)
  1. PAXIL CR [Suspect]
     Indication: DEPRESSION
     Dosage: 12.5MG PER DAY
     Route: 064
     Dates: start: 20030711, end: 20041129
  2. AZITHROMYCIN [Concomitant]
     Dates: start: 20040101
  3. MEDENT [Concomitant]
     Route: 064
     Dates: start: 20040101
  4. ARTHROTEC [Concomitant]

REACTIONS (3)
  - MATERNAL EXPOSURE DURING PREGNANCY [None]
  - CLEFT LIP [None]
  - CONGENITAL NOSE MALFORMATION [None]
